APPROVED DRUG PRODUCT: RITONAVIR
Active Ingredient: RITONAVIR
Strength: 100MG
Dosage Form/Route: CAPSULE;ORAL
Application: A205024 | Product #001
Applicant: QUAGEN PHARMACEUTICALS LLC
Approved: Feb 16, 2024 | RLD: No | RS: No | Type: RX